FAERS Safety Report 24612946 (Version 1)
Quarter: 2024Q4

REPORT INFORMATION
  Report Type: Spontaneous
  Country: US (occurrence: None)
  Receive Date: 20241113
  Receipt Date: 20241113
  Transmission Date: 20250115
  Serious: Yes (Hospitalization)
  Sender: Public
  Company Number: None

PATIENT
  Sex: Male

DRUGS (4)
  1. EPOPROSTENOL [Suspect]
     Active Substance: EPOPROSTENOL
     Indication: Pulmonary arterial hypertension
     Dosage: OTHER QUANTITY : 51.1NG/KG/MIN;?OTHER FREQUENCY : CONTINUOUS ;?
     Route: 042
     Dates: start: 202209
  2. SOD CHLOR SDV [Concomitant]
  3. WINREVAIR [Concomitant]
     Active Substance: SOTATERCEPT-CSRK
  4. DEVICE [Concomitant]
     Active Substance: DEVICE

REACTIONS (2)
  - Device alarm issue [None]
  - Thrombosis in device [None]
